FAERS Safety Report 19784446 (Version 6)
Quarter: 2022Q2

REPORT INFORMATION
  Report Type: Report from Study
  Country: PT (occurrence: PT)
  Receive Date: 20210903
  Receipt Date: 20220427
  Transmission Date: 20220720
  Serious: Yes (Life-Threatening, Hospitalization)
  Sender: FDA-Public Use
  Company Number: PT-SA-SAC20210901001305

PATIENT
  Age: 11 Year
  Sex: Male
  Weight: 33 kg

DRUGS (22)
  1. ISATUXIMAB [Suspect]
     Active Substance: ISATUXIMAB
     Indication: B-cell type acute leukaemia
     Dosage: 20 MG/KG, QW
     Route: 042
     Dates: start: 20210825, end: 20210825
  2. ISATUXIMAB [Suspect]
     Active Substance: ISATUXIMAB
     Dosage: 20 MG/KG, QW
     Route: 042
     Dates: start: 20210811, end: 20210811
  3. DEXAMETHASONE [Suspect]
     Active Substance: DEXAMETHASONE
     Indication: B-cell type acute leukaemia
     Dosage: 10 MG/M2, DAYS -3, -2, AND -1 BEFORE ISATUXIMAB ADMINISTRATION, DAYS 1, 8, 15 TO 19, 22, AND 29 TO 3
  4. DEXAMETHASONE [Suspect]
     Active Substance: DEXAMETHASONE
     Dosage: 10 MG/M2, DAYS -3, -2, AND -1 BEFORE ISATUXIMAB ADMINISTRATION, DAYS 1, 8, 15 TO 19, 22, AND 29 TO 3
  5. VINCRISTINE SULFATE [Suspect]
     Active Substance: VINCRISTINE SULFATE
     Indication: B-cell type acute leukaemia
     Dosage: 1.5 MG/M2, DAYS 10, 17, 24, AND 31 DURING THE INDUCTION PERIOD
     Route: 042
     Dates: start: 20210827, end: 20210827
  6. VINCRISTINE SULFATE [Suspect]
     Active Substance: VINCRISTINE SULFATE
     Dosage: 1.5 MG/M2, DAYS 10, 17, 24, AND 31 DURING THE INDUCTION PERIOD
     Route: 042
     Dates: start: 20210820, end: 20210820
  7. ASPARAGINASE [Suspect]
     Active Substance: ASPARAGINASE
     Indication: B-cell type acute leukaemia
     Dosage: 1000 IU/M? ON DAYS 10 AND 24 DURING THE INDUCTION PERIOD
     Route: 042
     Dates: start: 20210820, end: 20210820
  8. MITOXANTRONE [Suspect]
     Active Substance: MITOXANTRONE HYDROCHLORIDE
     Indication: B-cell type acute leukaemia
     Dosage: 10 MG/M2, DAYS 8 AND 9 OF THE INDUCTION PERIOD
     Route: 042
     Dates: start: 20210818, end: 20210819
  9. MONTELUKAST [Concomitant]
     Active Substance: MONTELUKAST SODIUM
     Indication: Prophylaxis
     Dosage: 5 MG, 1X
     Route: 048
     Dates: start: 20210818, end: 20210818
  10. MONTELUKAST [Concomitant]
     Active Substance: MONTELUKAST SODIUM
     Dosage: 5 MG, 1X
     Route: 048
     Dates: start: 20210825, end: 20210825
  11. ACETAMINOPHEN [Concomitant]
     Active Substance: ACETAMINOPHEN
     Indication: Prophylaxis
     Dosage: 1000 MG, 1X
     Route: 048
     Dates: start: 20210818, end: 20210818
  12. CLEMASTINE [Concomitant]
     Active Substance: CLEMASTINE
     Indication: Prophylaxis
     Dosage: 0.9 MG, 1X
     Route: 042
     Dates: start: 20210818, end: 20210818
  13. CLEMASTINE [Concomitant]
     Active Substance: CLEMASTINE
     Dosage: 0.9 MG, 1X
     Route: 042
     Dates: start: 20210825, end: 20210825
  14. DEXAMETHASONE [Concomitant]
     Active Substance: DEXAMETHASONE
     Indication: Prophylaxis
     Dosage: 11.5 MG, 1X
     Route: 042
     Dates: start: 20210818, end: 20210818
  15. DEXAMETHASONE [Concomitant]
     Active Substance: DEXAMETHASONE
     Dosage: 11.5 MG, 1X
     Route: 042
     Dates: start: 20210825, end: 20210825
  16. ACETAMINOPHEN [Concomitant]
     Active Substance: ACETAMINOPHEN
     Indication: Prophylaxis
     Dosage: 1000 MG, 1X
     Route: 048
     Dates: start: 20210825, end: 20210825
  17. HYDROCORTISONE [Concomitant]
     Active Substance: HYDROCORTISONE
     Indication: Prophylaxis
     Dosage: 60 MG/M2
     Dates: start: 20210818, end: 20210818
  18. HYDROCORTISONE [Concomitant]
     Active Substance: HYDROCORTISONE
     Dosage: 30 MG/M2, QD
     Dates: start: 20210825, end: 20210825
  19. METHOTREXATE [Concomitant]
     Active Substance: METHOTREXATE
     Indication: Prophylaxis
     Dosage: UNK
     Dates: start: 20210818, end: 20210818
  20. METHOTREXATE [Concomitant]
     Active Substance: METHOTREXATE
     Dosage: UNK
     Dates: start: 20210825, end: 20210825
  21. CYTARABINE [Concomitant]
     Active Substance: CYTARABINE
     Indication: Prophylaxis
     Dosage: UNK
     Dates: start: 20210818, end: 20210818
  22. CYTARABINE [Concomitant]
     Active Substance: CYTARABINE
     Dosage: UNK
     Dates: start: 20210825, end: 20210825

REACTIONS (1)
  - Septic shock [Recovered/Resolved]

NARRATIVE: CASE EVENT DATE: 20210829
